FAERS Safety Report 11090949 (Version 3)
Quarter: 2016Q1

REPORT INFORMATION
  Report Type: Spontaneous
  Country: US (occurrence: US)
  Receive Date: 20150505
  Receipt Date: 20160107
  Transmission Date: 20160525
  Serious: Yes (Hospitalization)
  Sender: FDA-Public Use
  Company Number: US-BAYER-2015-189856

PATIENT
  Age: 24 Year
  Sex: Female

DRUGS (1)
  1. MIRENA [Suspect]
     Active Substance: LEVONORGESTREL
     Indication: CONTRACEPTION
     Dosage: 20 MCG/24HR, CONT
     Route: 015
     Dates: start: 20080610, end: 20091119

REACTIONS (10)
  - Pelvic pain [Not Recovered/Not Resolved]
  - Vaginal discharge [None]
  - Device issue [None]
  - Injury [Not Recovered/Not Resolved]
  - Uterine perforation [Not Recovered/Not Resolved]
  - Dysstasia [Not Recovered/Not Resolved]
  - Scar [None]
  - Infertility female [None]
  - Abdominal pain lower [Not Recovered/Not Resolved]
  - Abdominal pain [Not Recovered/Not Resolved]

NARRATIVE: CASE EVENT DATE: 200806
